FAERS Safety Report 7496537-1 (Version None)
Quarter: 2011Q2

REPORT INFORMATION
  Report Type: 
  Country: None (occurrence: None)
  Receive Date: 20110520
  Receipt Date: 20110520
  Transmission Date: 20111010
  Serious: Yes (Hospitalization)
  Sender: FDA-Public Use
  Company Number: None

PATIENT
  Sex: Female
  Weight: 69.8 kg

DRUGS (1)
  1. CISPLATIN [Suspect]
     Dosage: 132 MG
     Dates: end: 20110427

REACTIONS (1)
  - DIARRHOEA [None]
